FAERS Safety Report 5230406-2 (Version None)
Quarter: 2007Q1

REPORT INFORMATION
  Report Type: 
  Country: None (occurrence: None)
  Receive Date: 20070206
  Receipt Date: 20070123
  Transmission Date: 20070707
  Serious: Yes (Other)
  Sender: FDA-Public Use
  Company Number: PHNR2007AU00555

PATIENT
  Age: 74 Year
  Sex: Female

DRUGS (1)
  1. SANDOSTATIN LAR [Suspect]
     Indication: CARCINOID SYNDROME
     Route: 030
     Dates: start: 20020101

REACTIONS (2)
  - HAEMATOMA [None]
  - INJECTION SITE INFECTION [None]
